FAERS Safety Report 8107503 (Version 6)
Quarter: 2014Q4

REPORT INFORMATION
  Report Type: Spontaneous
  Country: US (occurrence: US)
  Receive Date: 20110825
  Receipt Date: 20141115
  Transmission Date: 20150529
  Serious: Yes (Other)
  Sender: FDA-Public Use
  Company Number: US-ASTRAZENECA-2011SE49569

PATIENT
  Age: 50 Year
  Sex: Female
  Weight: 73.6 kg

DRUGS (22)
  1. NEXIUM [Suspect]
     Active Substance: ESOMEPRAZOLE MAGNESIUM
     Indication: GASTROOESOPHAGEAL REFLUX DISEASE
     Route: 048
  2. KOMBIGLYZE XR [Suspect]
     Active Substance: METFORMIN HYDROCHLORIDE\SAXAGLIPTIN HYDROCHLORIDE
     Route: 048
  3. VITAMIN D [Concomitant]
     Active Substance: CHOLECALCIFEROL
     Dosage: 50000 UNITS WEEKLY
     Route: 048
  4. PROTONEX [Concomitant]
  5. ZANTAX [Concomitant]
  6. TRACLEER [Concomitant]
     Active Substance: BOSENTAN\BOSENTAN MONOHYDRATE
     Route: 048
  7. MAGNESIUM [Concomitant]
     Active Substance: MAGNESIUM
  8. IRON [Concomitant]
     Active Substance: IRON
     Route: 048
  9. OMEGA 3 [Concomitant]
     Active Substance: OMEGA-3 FATTY ACIDS
     Route: 048
  10. NEXIUM [Suspect]
     Active Substance: ESOMEPRAZOLE MAGNESIUM
     Indication: GASTROOESOPHAGEAL REFLUX DISEASE
     Dosage: BID
     Route: 048
  11. ACIPHEX [Concomitant]
     Active Substance: RABEPRAZOLE SODIUM
  12. CRESTOR [Suspect]
     Active Substance: ROSUVASTATIN CALCIUM
     Route: 048
  13. VITAMIN B12 [Concomitant]
     Active Substance: CYANOCOBALAMIN
     Dosage: 1000 MCG/ML MONTHLY
  14. SIMVASTATIN. [Concomitant]
     Active Substance: SIMVASTATIN
     Indication: HYPERCHOLESTEROLAEMIA
  15. NEXIUM [Suspect]
     Active Substance: ESOMEPRAZOLE MAGNESIUM
     Indication: BARRETT^S OESOPHAGUS
     Dosage: BID
     Route: 048
  16. NEXIUM [Suspect]
     Active Substance: ESOMEPRAZOLE MAGNESIUM
     Indication: BARRETT^S OESOPHAGUS
     Route: 048
  17. LASIX [Suspect]
     Active Substance: FUROSEMIDE
     Route: 048
  18. VYTORIN [Concomitant]
     Active Substance: EZETIMIBE\SIMVASTATIN
     Dosage: 10-40 MG TABLET, ONE TABLET EVERY EVENING
     Route: 048
  19. AVANDIA [Concomitant]
     Active Substance: ROSIGLITAZONE MALEATE
     Indication: DIABETES MELLITUS
  20. PRILOSEC [Suspect]
     Active Substance: OMEPRAZOLE MAGNESIUM
     Route: 048
  21. DEXILANT [Suspect]
     Active Substance: DEXLANSOPRAZOLE
  22. CHROMIUM [Concomitant]
     Active Substance: CHROMIC CHLORIDE\CHROMIUM

REACTIONS (33)
  - Cervical polyp [Unknown]
  - Large intestine polyp [Unknown]
  - Oedema peripheral [Unknown]
  - Lung disorder [Unknown]
  - Diabetes mellitus [Unknown]
  - Haematochezia [Unknown]
  - Barrett^s oesophagus [Unknown]
  - Dysphagia [Not Recovered/Not Resolved]
  - Arthralgia [Unknown]
  - Aspiration [Not Recovered/Not Resolved]
  - Pulmonary arterial hypertension [Unknown]
  - Ventricular extrasystoles [Unknown]
  - Menorrhagia [Recovered/Resolved]
  - Raynaud^s phenomenon [Unknown]
  - Gastritis [Unknown]
  - Drug ineffective [Unknown]
  - Iron deficiency anaemia [Unknown]
  - Arteriosclerosis coronary artery [Unknown]
  - Joint stiffness [Unknown]
  - Uterine leiomyoma [Unknown]
  - Hypertension [Not Recovered/Not Resolved]
  - Gastrooesophageal reflux disease [Not Recovered/Not Resolved]
  - Agitation [Unknown]
  - Diarrhoea [Unknown]
  - Fibrosis [Unknown]
  - Hypokalaemia [Recovered/Resolved]
  - Arthritis [Not Recovered/Not Resolved]
  - Scleroderma [Unknown]
  - Breast mass [Unknown]
  - Hypercholesterolaemia [Unknown]
  - Oesophageal disorder [Not Recovered/Not Resolved]
  - Regurgitation [Unknown]
  - Drug dose omission [Unknown]

NARRATIVE: CASE EVENT DATE: 1980
